FAERS Safety Report 21069741 (Version 2)
Quarter: 2024Q3

REPORT INFORMATION
  Report Type: Spontaneous
  Country: US (occurrence: US)
  Receive Date: 20220712
  Receipt Date: 20240722
  Transmission Date: 20241017
  Serious: No
  Sender: ASTELLAS
  Company Number: US-ASTELLAS-2021US034684

PATIENT
  Sex: Female

DRUGS (3)
  1. MYRBETRIQ [Suspect]
     Active Substance: MIRABEGRON
     Indication: Product used for unknown indication
     Route: 065
     Dates: end: 202109
  2. MYRBETRIQ [Suspect]
     Active Substance: MIRABEGRON
     Dosage: ONCE (1. 5 TABLET)
     Route: 065
     Dates: start: 202109, end: 202109
  3. MYRBETRIQ [Suspect]
     Active Substance: MIRABEGRON
     Route: 065
     Dates: start: 202109

REACTIONS (6)
  - Memory impairment [Unknown]
  - Urinary tract disorder [Unknown]
  - Bladder disorder [Unknown]
  - Wrong technique in product usage process [Unknown]
  - Overdose [Unknown]
  - Intentional product misuse [Unknown]

NARRATIVE: CASE EVENT DATE: 20210901
